FAERS Safety Report 5146278-0 (Version None)
Quarter: 2006Q4

REPORT INFORMATION
  Report Type: 
  Country: None (occurrence: None)
  Receive Date: 20061102
  Receipt Date: 20061020
  Transmission Date: 20070319
  Serious: Yes (Life-Threatening, Hospitalization, Other)
  Sender: FDA-Public Use
  Company Number: HQWYE384620OCT06

PATIENT
  Age: 64 Year
  Sex: Female

DRUGS (5)
  1. PANTOPRAZOLE SODIUM [Suspect]
     Indication: GASTROOESOPHAGEAL REFLUX DISEASE
     Dosage: ; ONCE ORAL
     Route: 048
     Dates: start: 20060914, end: 20060914
  2. NICARDIPINE HYDROCHLORIDE [Concomitant]
  3. MEDIATOR (BENFLUOREX HYDROCHLORIDE) [Concomitant]
  4. LIPANOR (CIPROFIBRATE) [Concomitant]
  5. ACETYLSALICYLATE LYSINE (ACETYLSALICYLATE LYSINE) [Concomitant]

REACTIONS (12)
  - ACIDOSIS [None]
  - ANAPHYLACTIC SHOCK [None]
  - C-REACTIVE PROTEIN INCREASED [None]
  - HAEMOGLOBIN DECREASED [None]
  - HYPOTENSION [None]
  - HYPOTHERMIA [None]
  - HYPOXIA [None]
  - LOSS OF CONSCIOUSNESS [None]
  - PLATELET COUNT INCREASED [None]
  - RASH ERYTHEMATOUS [None]
  - RASH PRURITIC [None]
  - WHITE BLOOD CELL COUNT INCREASED [None]
